FAERS Safety Report 5197468-2 (Version None)
Quarter: 2006Q4

REPORT INFORMATION
  Report Type: 
  Country: None (occurrence: None)
  Receive Date: 20060927
  Receipt Date: 20060712
  Transmission Date: 20070319
  Serious: No
  Sender: FDA-Public Use
  Company Number: US-CVT-061512

PATIENT
  Age: 86 Year
  Sex: Male

DRUGS (5)
  1. RANEXA [Suspect]
     Indication: ANGINA PECTORIS
     Dosage: 500 MG, BID, ORAL
     Route: 048
     Dates: start: 20060703, end: 20060712
  2. NITRATES [Concomitant]
  3. BETA BLOCKING AGENTS [Concomitant]
  4. ARB (CANDESARTAN CILEXETIL) [Concomitant]
  5. DIABETIC MEDICATIONS [Concomitant]

REACTIONS (2)
  - ANOREXIA [None]
  - NAUSEA [None]
